FAERS Safety Report 20539296 (Version 1)
Quarter: 2022Q1

REPORT INFORMATION
  Report Type: Spontaneous
  Country: ES (occurrence: ES)
  Receive Date: 20220302
  Receipt Date: 20220302
  Transmission Date: 20220423
  Serious: Yes (Hospitalization)
  Sender: FDA-Public Use
  Company Number: None

PATIENT
  Age: 64 Year
  Sex: Male

DRUGS (3)
  1. COBICISTAT\DARUNAVIR ETHANOLATE [Suspect]
     Active Substance: COBICISTAT\DARUNAVIR ETHANOLATE
     Indication: Asymptomatic HIV infection
     Dosage: 800 MG / 150 MG, 1 COMPRIMIDO AL DIA
     Route: 048
     Dates: start: 20160419
  2. EPIVIR [Suspect]
     Active Substance: LAMIVUDINE
     Indication: Asymptomatic HIV infection
     Dosage: 300 MG, 1 COMPRIMNIDO AL DIA
     Route: 048
     Dates: start: 20160419
  3. ZYPREXA [Suspect]
     Active Substance: OLANZAPINE
     Indication: Psychotic disorder
     Dosage: 20 MG, 1 VEZ AL DIA
     Route: 048
     Dates: start: 20171123, end: 20190328

REACTIONS (1)
  - Blood creatine phosphokinase increased [Recovered/Resolved]

NARRATIVE: CASE EVENT DATE: 20190327
